FAERS Safety Report 5500272-6 (Version None)
Quarter: 2007Q4

REPORT INFORMATION
  Report Type: 
  Country: None (occurrence: None)
  Receive Date: 20071029
  Receipt Date: 20071018
  Transmission Date: 20080405
  Serious: Yes (Life-Threatening, Other)
  Sender: FDA-Public Use
  Company Number: US-JNJFOC-20070902844

PATIENT
  Sex: Female
  Weight: 102.51 kg

DRUGS (9)
  1. REMICADE [Suspect]
     Route: 042
  2. REMICADE [Suspect]
     Route: 042
  3. REMICADE [Suspect]
     Route: 042
  4. REMICADE [Suspect]
     Indication: RHEUMATOID ARTHRITIS
     Route: 042
  5. PREDNISONE [Concomitant]
  6. DECADRON [Concomitant]
  7. DECADRON [Concomitant]
  8. DECADRON [Concomitant]
  9. DECADRON [Concomitant]
     Indication: PREMEDICATION

REACTIONS (6)
  - CHEST DISCOMFORT [None]
  - INFUSION RELATED REACTION [None]
  - PULSE ABSENT [None]
  - RESPIRATORY ARREST [None]
  - THROAT TIGHTNESS [None]
  - UNRESPONSIVE TO STIMULI [None]
